FAERS Safety Report 23375725 (Version 2)
Quarter: 2024Q1

REPORT INFORMATION
  Report Type: Report from Study
  Country: US (occurrence: US)
  Receive Date: 20240107
  Receipt Date: 20240109
  Transmission Date: 20240410
  Serious: No
  Sender: FDA-Public Use
  Company Number: US-ABBVIE-5383762

PATIENT
  Sex: Female
  Weight: 61 kg

DRUGS (2)
  1. HUMIRA [Suspect]
     Active Substance: ADALIMUMAB
     Indication: Crohn^s disease
     Dosage: LAST ADMIN DATE- 2023?CITRATE FREE FORM STRENGTH UNITS: 40 MILLIGRAM
     Route: 058
     Dates: start: 20230713
  2. HUMIRA [Suspect]
     Active Substance: ADALIMUMAB
     Dosage: CITRATE FREE FORM STRENGTH UNITS: 40 MILLIGRAM
     Route: 058
     Dates: start: 202308

REACTIONS (2)
  - Crohn^s disease [Unknown]
  - Fatigue [Unknown]

NARRATIVE: CASE EVENT DATE: 20230101
